FAERS Safety Report 20735090 (Version 1)
Quarter: 2022Q2

REPORT INFORMATION
  Report Type: Spontaneous
  Country: IN (occurrence: IN)
  Receive Date: 20220421
  Receipt Date: 20220421
  Transmission Date: 20220721
  Serious: Yes (Other)
  Sender: FDA-Public Use
  Company Number: IN-PFIZER INC-2019236966

PATIENT
  Age: 86 Year
  Sex: Female

DRUGS (3)
  1. PALBOCICLIB [Suspect]
     Active Substance: PALBOCICLIB
     Indication: Breast cancer metastatic
     Dosage: 125 MG, CYCLIC (ONCE DAILY FOR 21 DAYS, THEN ONE WEEK OFF)
     Route: 048
     Dates: start: 20190502
  2. LETROZ [Concomitant]
     Dosage: 2.5 MG, 1X/DAY AFTER FOOD IN THE MORNING
     Route: 048
  3. IDROFOS [Concomitant]
     Dosage: 150 MG, WEEKLY (ONCE A WEEK TILL NEXT REVIEW AFTER FOOD IN THE MORNING)
     Route: 048

REACTIONS (8)
  - Femur fracture [Unknown]
  - Fall [Unknown]
  - Nausea [Unknown]
  - White blood cell count decreased [Unknown]
  - Platelet count decreased [Unknown]
  - Feeding disorder [Unknown]
  - Dry skin [Unknown]
  - Asthenia [Unknown]
